FAERS Safety Report 9802055 (Version 2)
Quarter: 2014Q3

REPORT INFORMATION
  Report Type: Spontaneous
  Country: US (occurrence: US)
  Receive Date: 20140107
  Receipt Date: 20140811
  Transmission Date: 20150326
  Serious: Yes (Hospitalization, Other)
  Sender: FDA-Public Use
  Company Number: US-009507513-1401USA001986

PATIENT
  Sex: Female
  Weight: 74.38 kg

DRUGS (1)
  1. NUVARING [Suspect]
     Active Substance: ETHINYL ESTRADIOL\ETONOGESTREL
     Indication: CONTRACEPTION
     Dosage: UNK
     Route: 067
     Dates: end: 20120508

REACTIONS (5)
  - Brain stem stroke [Recovering/Resolving]
  - Blood pressure increased [Unknown]
  - Thyroid neoplasm [Unknown]
  - Cerebrovascular accident [Recovering/Resolving]
  - Vertebral artery dissection [Recovering/Resolving]

NARRATIVE: CASE EVENT DATE: 20120429
